FAERS Safety Report 8012660-7 (Version None)
Quarter: 2011Q4

REPORT INFORMATION
  Report Type: 
  Country: None (occurrence: None)
  Receive Date: 20111229
  Receipt Date: 20111222
  Transmission Date: 20120403
  Serious: Yes (Disabling, Other)
  Sender: FDA-Public Use
  Company Number: DE-JNJFOC-20111007313

PATIENT
  Age: 85 Year
  Sex: Female

DRUGS (7)
  1. NYSTATIN [Concomitant]
     Indication: TRACHEITIS
     Route: 065
  2. ASPIRIN [Concomitant]
     Route: 065
  3. LYRICA [Concomitant]
     Route: 065
  4. DUSPATAL NOS [Concomitant]
     Route: 065
  5. LEVOFLOXACIN [Suspect]
     Indication: BRONCHITIS
     Route: 065
     Dates: start: 20110901, end: 20110901
  6. METOPROLOL SUCCINATE [Concomitant]
     Route: 065
  7. ACETAMINOPHEN [Concomitant]
     Route: 065

REACTIONS (8)
  - TENDON INJURY [None]
  - TENDON PAIN [None]
  - LARYNX IRRITATION [None]
  - COLITIS [None]
  - DEPRESSED MOOD [None]
  - MYALGIA [None]
  - HYPOKINESIA [None]
  - DYSPNOEA [None]
